FAERS Safety Report 8449805-0 (Version None)
Quarter: 2012Q2

REPORT INFORMATION
  Report Type: 
  Country: None (occurrence: None)
  Receive Date: 20120620
  Receipt Date: 20110629
  Transmission Date: 20120825
  Serious: No
  Sender: FDA-Public Use
  Company Number: US-TEVA-2011003423

PATIENT
  Sex: Female
  Weight: 134.84 kg

DRUGS (13)
  1. LYRICA [Concomitant]
     Dates: start: 20070101
  2. SINGULAIR [Concomitant]
  3. OXYCONTIN [Concomitant]
     Dosage: 320 MILLIGRAM;
     Dates: start: 20020101
  4. HUMIRA [Concomitant]
  5. ALBUTEROL [Concomitant]
  6. OXYCONTIN [Concomitant]
     Dosage: 60 MILLIGRAM;
     Dates: start: 20020101
  7. ADVAIR DISKUS 100/50 [Concomitant]
     Dates: start: 20030101
  8. GLIPIZIDE [Concomitant]
  9. FENTORA [Suspect]
     Indication: BREAKTHROUGH PAIN
     Route: 002
     Dates: start: 20070101
  10. PREDNISONE TAB [Concomitant]
     Dates: start: 20010101
  11. LISINOPRIL [Concomitant]
     Dates: start: 20100101
  12. INSULIN [Concomitant]
  13. CELEBREX [Concomitant]
     Dates: start: 20010101

REACTIONS (2)
  - NAUSEA [None]
  - VOMITING [None]
